FAERS Safety Report 9350188 (Version 2)
Quarter: 2013Q3

REPORT INFORMATION
  Report Type: Spontaneous
  Country: US (occurrence: US)
  Receive Date: 20130617
  Receipt Date: 20130827
  Transmission Date: 20140515
  Serious: No
  Sender: FDA-Public Use
  Company Number: US-B.I. PHARMACEUTICALS,INC./RIDGEFIELD-2013-BI-16456BP

PATIENT
  Sex: Female

DRUGS (1)
  1. ATROVENT [Suspect]
     Route: 055
     Dates: start: 201301

REACTIONS (2)
  - Drug ineffective [Unknown]
  - Product quality issue [Recovered/Resolved]
